FAERS Safety Report 12604481 (Version 1)
Quarter: 2016Q3

REPORT INFORMATION
  Report Type: Spontaneous
  Country: CA (occurrence: CA)
  Receive Date: 20160728
  Receipt Date: 20160728
  Transmission Date: 20161109
  Serious: Yes (Hospitalization)
  Sender: FDA-Public Use
  Company Number: CA-BEH-2016071411

PATIENT
  Age: 69 Year
  Sex: Female
  Weight: 57 kg

DRUGS (17)
  1. ATIVAN [Concomitant]
     Active Substance: LORAZEPAM
     Route: 065
  2. COLACE [Concomitant]
     Active Substance: DOCUSATE SODIUM
     Route: 065
  3. RESTORIL [Concomitant]
     Active Substance: TEMAZEPAM
     Route: 065
  4. VITAMIN D                          /00107901/ [Concomitant]
     Active Substance: ERGOCALCIFEROL
     Route: 065
  5. COPAXONE [Concomitant]
     Active Substance: GLATIRAMER ACETATE
     Route: 065
  6. LECTOPAM [Concomitant]
     Active Substance: BROMAZEPAM
     Route: 065
  7. MIRAPEX [Concomitant]
     Active Substance: PRAMIPEXOLE DIHYDROCHLORIDE
     Route: 065
  8. WELLBUTRIN [Concomitant]
     Active Substance: BUPROPION HYDROCHLORIDE
     Route: 065
  9. PRIVIGEN [Suspect]
     Active Substance: HUMAN IMMUNOGLOBULIN G
     Indication: MULTIPLE SCLEROSIS
     Dosage: 80 G, QMT
     Route: 042
  10. REMERON RD [Concomitant]
     Active Substance: MIRTAZAPINE
     Route: 048
  11. LIORESAL [Concomitant]
     Active Substance: BACLOFEN
     Route: 065
  12. STATEX                             /00036302/ [Concomitant]
     Active Substance: MORPHINE SULFATE
     Route: 065
  13. CIPRALEX [Concomitant]
     Active Substance: ESCITALOPRAM OXALATE
     Route: 065
  14. LAMICTAL [Concomitant]
     Active Substance: LAMOTRIGINE
     Route: 065
  15. NEURONTIN [Concomitant]
     Active Substance: GABAPENTIN
     Route: 065
  16. PANTOLOC                           /01263204/ [Concomitant]
     Active Substance: PANTOPRAZOLE SODIUM
     Route: 065
  17. PRIVIGEN [Suspect]
     Active Substance: HUMAN IMMUNOGLOBULIN G
     Indication: CHRONIC INFLAMMATORY DEMYELINATING POLYRADICULONEUROPATHY
     Dosage: 20 G, QMT
     Route: 042

REACTIONS (1)
  - Febrile neutropenia [Recovered/Resolved]
